FAERS Safety Report 9154595 (Version 1)
Quarter: 2013Q1

REPORT INFORMATION
  Report Type: Report from Study
  Country: US (occurrence: US)
  Receive Date: 20130311
  Receipt Date: 20130311
  Transmission Date: 20140127
  Serious: No
  Sender: FDA-Public Use
  Company Number: US-ABBOTT-12P-163-0946159-00

PATIENT
  Age: 43 Year
  Sex: Female

DRUGS (3)
  1. LUPRON DEPOT 11.25 MG [Suspect]
     Indication: MENORRHAGIA
     Dates: start: 201203, end: 201206
  2. LUPRON DEPOT 11.25 MG [Suspect]
  3. LUPRON DEPOT 3.75 MG [Suspect]
     Indication: MENORRHAGIA
     Route: 030
     Dates: start: 201206

REACTIONS (6)
  - Off label use [Not Recovered/Not Resolved]
  - Menstrual disorder [Unknown]
  - Menorrhagia [Unknown]
  - Pain [Unknown]
  - Asthenia [Unknown]
  - Menorrhagia [Unknown]
